FAERS Safety Report 6241886-8 (Version None)
Quarter: 2009Q2

REPORT INFORMATION
  Report Type: 
  Country: None (occurrence: None)
  Receive Date: 20090622
  Receipt Date: 20090609
  Transmission Date: 20091009
  Serious: Yes (Other)
  Sender: FDA-Public Use
  Company Number: 2009AP002335

PATIENT
  Age: 60 Year
  Sex: Female

DRUGS (4)
  1. AMLODIPINE BESYLATE [Suspect]
     Indication: HYPERTENSION
     Dosage: 10 MG;BID;PO
     Route: 048
     Dates: start: 20060101, end: 20080222
  2. VALSARTAN [Concomitant]
  3. CARBAMAZEPINE [Concomitant]
  4. GUAIFENESIN [Concomitant]

REACTIONS (4)
  - CONDITION AGGRAVATED [None]
  - CONVULSION [None]
  - HEADACHE [None]
  - MYALGIA [None]
